FAERS Safety Report 5725417-4 (Version None)
Quarter: 2008Q2

REPORT INFORMATION
  Report Type: 
  Country: None (occurrence: None)
  Receive Date: 20080501
  Receipt Date: 20080429
  Transmission Date: 20081010
  Serious: Yes (Hospitalization)
  Sender: FDA-Public Use
  Company Number: US-WYE-H02814608

PATIENT
  Sex: Female
  Weight: 74.46 kg

DRUGS (9)
  1. CORDARONE [Suspect]
     Indication: ATRIAL FIBRILLATION
     Route: 048
     Dates: start: 20080217, end: 20080227
  2. ASCORBIC ACID [Concomitant]
     Route: 048
  3. ZOCOR [Concomitant]
     Route: 048
  4. COUMADIN [Concomitant]
     Dosage: DOSE UNKNOWN
     Route: 065
  5. FOLIC ACID [Concomitant]
     Route: 048
  6. LASIX [Concomitant]
     Route: 048
     Dates: end: 20080201
  7. KLOR-CON [Concomitant]
     Dosage: 1 TABLET TWICE DAILY
     Route: 048
  8. LOPRESSOR [Concomitant]
     Route: 048
  9. FEOSOL [Concomitant]
     Dosage: 325 MG, FREQUENCY UNSPECIFIED
     Route: 048

REACTIONS (2)
  - ANAEMIA [None]
  - AUTOIMMUNE THROMBOCYTOPENIA [None]
